FAERS Safety Report 16449251 (Version 1)
Quarter: 2019Q2

REPORT INFORMATION
  Report Type: Report from Study
  Country: None (occurrence: IT)
  Receive Date: 20190619
  Receipt Date: 20190619
  Transmission Date: 20190711
  Serious: Yes (Death, Hospitalization, Other)
  Sender: FDA-Public Use
  Company Number: IT-ABBVIE-19S-083-2645013-00

PATIENT
  Age: 80 Year
  Sex: Male

DRUGS (1)
  1. DUODOPA [Suspect]
     Active Substance: CARBIDOPA\LEVODOPA
     Indication: PARKINSON^S DISEASE
     Dosage: MD: 4,7+3 CR: 2,7 ED: 1,6
     Route: 050
     Dates: start: 20160924, end: 20190129

REACTIONS (3)
  - Bezoar [Recovered/Resolved]
  - Intestinal obstruction [Not Recovered/Not Resolved]
  - Death [Fatal]

NARRATIVE: CASE EVENT DATE: 20190129
